FAERS Safety Report 9214555 (Version 1)
Quarter: 2013Q2

REPORT INFORMATION
  Report Type: Spontaneous
  Country: IT (occurrence: IT)
  Receive Date: 20130405
  Receipt Date: 20130405
  Transmission Date: 20140414
  Serious: Yes (Hospitalization)
  Sender: FDA-Public Use
  Company Number: PHHY2013IT031176

PATIENT
  Age: 89 Year
  Sex: Male

DRUGS (3)
  1. VOLTAREN [Suspect]
     Indication: ARTHRALGIA
     Dosage: 1 DF DAILY
     Route: 048
     Dates: start: 20130220, end: 20130226
  2. ASCRIPTIN [Suspect]
     Indication: THROMBOSIS PROPHYLAXIS
     Dosage: 1 DF
     Route: 048
     Dates: start: 20120101, end: 20130226
  3. ALIFLUS [Concomitant]

REACTIONS (4)
  - Pallor [Unknown]
  - Melaena [Unknown]
  - Abdominal pain upper [Unknown]
  - Hypotension [Unknown]
